FAERS Safety Report 20170100 (Version 2)
Quarter: 2021Q4

REPORT INFORMATION
  Report Type: Spontaneous
  Country: DE (occurrence: DE)
  Receive Date: 20211210
  Receipt Date: 20211229
  Transmission Date: 20220303
  Serious: Yes (Hospitalization, Other)
  Sender: FDA-Public Use
  Company Number: None

PATIENT
  Age: 83 Year
  Sex: Female
  Weight: 69 kg

DRUGS (25)
  1. CITALOPRAM [Suspect]
     Active Substance: CITALOPRAM HYDROBROMIDE
     Indication: Depression
     Dosage: 20 MILLIGRAM DAILY; 1-0-0
     Route: 048
  2. CITALOPRAM [Suspect]
     Active Substance: CITALOPRAM HYDROBROMIDE
     Dosage: 1 1/2
     Route: 048
     Dates: start: 20211119
  3. QUETIAPINE [Suspect]
     Active Substance: QUETIAPINE
     Indication: Depression
     Dosage: 100 MILLIGRAM DAILY; 0-0-0-1
     Route: 048
     Dates: end: 20211119
  4. FENTANYL [Suspect]
     Active Substance: FENTANYL
     Indication: Scoliosis
     Dosage: 1 DF , STRENGTH : 25 UG / H, CHANGE 12.5 MCG / H EVERY 3 DAYS, FENTANYL PATCH
     Route: 062
     Dates: start: 20211119
  5. FENTANYL [Suspect]
     Active Substance: FENTANYL
     Dosage: CHANGE 25MCG / H EVERY 3 DAYS, 1 DF
     Route: 062
     Dates: end: 202111
  6. MIRTAZAPINE [Suspect]
     Active Substance: MIRTAZAPINE
     Indication: Depression
     Dosage: 30 MILLIGRAM DAILY; 0-0-0-2
     Route: 048
     Dates: end: 202111
  7. MIRTAZAPINE [Suspect]
     Active Substance: MIRTAZAPINE
     Dosage: FROM NOVEMBER 2021 INCREASED TO 45MG PER NIGHT
     Route: 048
     Dates: start: 20211119
  8. FUROSEMIDE [Concomitant]
     Active Substance: FUROSEMIDE
     Dosage: 1 / 2-0-0 (IF YOU HAVE EDEMA IN YOUR LEGS, TAKE AN ADDITIONAL 1/2 TABLET) , UNIT DOSE :  10 MG
  9. ALENDRONIC ACID [Concomitant]
     Active Substance: ALENDRONIC ACID
     Dosage: 1X A WEEK ON SATURDAYS , UNIT DOSE : 70 MG
  10. CLOPIDOGREL [Concomitant]
     Active Substance: CLOPIDOGREL BISULFATE
     Indication: Coronary artery disease
     Dosage: 37.5 MILLIGRAM DAILY; 0.5-0-0 BY MID-JUNE 2022
     Route: 048
     Dates: start: 202106
  11. CLOPIDOGREL [Concomitant]
     Active Substance: CLOPIDOGREL BISULFATE
     Indication: Coronary arterial stent insertion
  12. PANTOPRAZOLE SODIUM [Concomitant]
     Active Substance: PANTOPRAZOLE SODIUM
     Dosage: 40 MILLIGRAM DAILY; 2-0-0
     Dates: end: 202111
  13. PANTOPRAZOLE SODIUM [Concomitant]
     Active Substance: PANTOPRAZOLE SODIUM
     Dosage: 1 TABLET
     Dates: start: 202112
  14. ASPIRIN [Concomitant]
     Active Substance: ASPIRIN
     Dosage: 100 MILLIGRAM DAILY; 0-1-0 ,ASS 100
  15. BRIMONIDINE [Concomitant]
     Active Substance: BRIMONIDINE TARTRATE
     Dosage: 2 GTT DAILY; 1-0-1 BOTH EYES, 5 MIN. TO BRINZO
  16. NITROGLYCERIN [Concomitant]
     Active Substance: NITROGLYCERIN
     Indication: Chest discomfort
  17. NITROGLYCERIN [Concomitant]
     Active Substance: NITROGLYCERIN
     Indication: Prophylaxis
  18. AMLODIPINE\VALSARTAN [Concomitant]
     Active Substance: AMLODIPINE\VALSARTAN
     Dosage: 2 DOSAGE FORMS DAILY; 1-0-1 ,  STRENGTH : 5 MG/160MG
  19. Vigantol [Concomitant]
     Dosage: 1 DOSAGE FORMS DAILY; 0-0-1-0, VIGANTOL 1000 IU VIT.D3
  20. NEBIVOLOL [Concomitant]
     Active Substance: NEBIVOLOL
     Indication: Coronary arterial stent insertion
     Dosage: 1.25 MILLIGRAM DAILY; 1/4-0-0
  21. TIMOLOL MALEATE\TRAVOPROST [Concomitant]
     Active Substance: TIMOLOL MALEATE\TRAVOPROST
     Dosage: 1 GTT DAILY; STRENGTH : 40 MICRO / ML + 5 MG / ML, 0-0-1 BOTH EYES, 5 MIN. AFTER BRIMONIDINE
  22. ATORVASTATIN [Concomitant]
     Active Substance: ATORVASTATIN
     Dosage: 40 MILLIGRAM DAILY; 0-0-1
  23. BRINZO VISION [Concomitant]
     Dosage: 2 GTT DAILY; 1-0-1 BOTH EYES
  24. IODINE [Concomitant]
     Active Substance: IODINE
     Dosage: 200 MICROGRAM DAILY; 1-0-0
  25. Kalinor [Concomitant]
     Dosage: 1200 MILLIGRAM DAILY; 1-0-1-0 FROM NOVEMBER 19, 2021 FIRST TABLE SET FROM MORNING TO NOON

REACTIONS (16)
  - Blood pressure fluctuation [Recovering/Resolving]
  - General physical health deterioration [Recovering/Resolving]
  - Constipation [Recovering/Resolving]
  - Chills [Not Recovered/Not Resolved]
  - Decreased appetite [Recovering/Resolving]
  - Gait disturbance [Recovering/Resolving]
  - Cholestasis [Recovering/Resolving]
  - Cholestasis [Recovering/Resolving]
  - Hypotonia [Recovering/Resolving]
  - Weight decreased [Recovering/Resolving]
  - Feeling cold [Recovering/Resolving]
  - Hepatocellular injury [Recovering/Resolving]
  - Night sweats [Not Recovered/Not Resolved]
  - Urinary tract infection [Recovering/Resolving]
  - Dry eye [Recovering/Resolving]
  - Dry mouth [Recovering/Resolving]

NARRATIVE: CASE EVENT DATE: 20210101
